FAERS Safety Report 10009403 (Version 2)
Quarter: 2014Q1

REPORT INFORMATION
  Report Type: Spontaneous
  Country: US (occurrence: US)
  Receive Date: 20140313
  Receipt Date: 20140313
  Transmission Date: 20141002
  Serious: No
  Sender: FDA-Public Use
  Company Number: US-INCYTE CORPORATION-2012IN001318

PATIENT
  Sex: Female
  Weight: 78.64 kg

DRUGS (20)
  1. JAKAFI [Suspect]
     Indication: MYELOFIBROSIS
     Dosage: 20 MG, BID
     Route: 048
     Dates: start: 20120304
  2. JAKAFI [Suspect]
     Dosage: 10 MG, BID
     Route: 048
     Dates: start: 20120509, end: 20120627
  3. JAKAFI [Suspect]
     Dosage: 5 MG, BID
     Route: 048
     Dates: start: 20120731
  4. JAKAFI [Suspect]
     Dosage: 10 MG, BID
     Route: 048
     Dates: start: 20120918, end: 20130318
  5. JAKAFI [Suspect]
     Dosage: 5 MG, BID
     Route: 048
     Dates: start: 20130403
  6. JAKAFI [Suspect]
     Dosage: 10 MG, BID
     Route: 048
     Dates: start: 20130522
  7. PLAQUENIL [Concomitant]
     Dosage: TWICE DAILY
  8. PLAQUENIL [Concomitant]
     Dosage: THREE TIMES DAILY
  9. CIPRO [Concomitant]
  10. ALLOPURINOL [Concomitant]
  11. CALCIUM [Concomitant]
  12. MULTIVITAMIN [Concomitant]
  13. FUROSEMIDE [Concomitant]
  14. HYDROCODONE W/ACETAMINOPHEN [Concomitant]
  15. KLOR-CON [Concomitant]
  16. OMEPRAZOLE [Concomitant]
  17. OSTEO BI-FLEX [Concomitant]
  18. PROMETHAZINE [Concomitant]
  19. VITAMIN C [Concomitant]
  20. VITAMIN E-400 [Concomitant]

REACTIONS (6)
  - Hepatic pain [Recovered/Resolved]
  - Liver function test abnormal [Recovered/Resolved]
  - Blood test abnormal [Recovered/Resolved]
  - Haemoglobin decreased [Recovered/Resolved]
  - Platelet count decreased [Recovered/Resolved]
  - Drug ineffective [Recovered/Resolved]
